FAERS Safety Report 11053143 (Version 1)
Quarter: 2015Q2

REPORT INFORMATION
  Report Type: Spontaneous
  Country: US (occurrence: US)
  Receive Date: 20150421
  Receipt Date: 20150421
  Transmission Date: 20150821
  Serious: No
  Sender: FDA-Public Use
  Company Number: US-GLAXOSMITHKLINE-US2015GSK054019

PATIENT
  Sex: Female

DRUGS (2)
  1. TAFINLAR [Suspect]
     Active Substance: DABRAFENIB MESYLATE
     Indication: SKIN CANCER
     Dosage: 75 MG, QD
     Route: 065
     Dates: start: 20140719
  2. MEKINIST [Suspect]
     Active Substance: TRAMETINIB DIMETHYL SULFOXIDE
     Indication: SKIN CANCER
     Dosage: 2 MG, QD
     Route: 065
     Dates: start: 20140719

REACTIONS (1)
  - Therapy cessation [Unknown]
